FAERS Safety Report 7493883-2 (Version None)
Quarter: 2011Q2

REPORT INFORMATION
  Report Type: 
  Country: None (occurrence: None)
  Receive Date: 20110520
  Receipt Date: 20110517
  Transmission Date: 20111010
  Serious: Yes (Life-Threatening)
  Sender: FDA-Public Use
  Company Number: ES-ROCHE-771289

PATIENT
  Sex: Female
  Weight: 61.9 kg

DRUGS (9)
  1. BEVACIZUMAB [Suspect]
     Indication: COLORECTAL CANCER
     Dosage: FORM: VIAL. LAST DOSE PRIOR TO SAE: 08 APRIL 2011.FREQUENCY: 3 WEEKS
     Route: 042
     Dates: start: 20100611, end: 20110410
  2. OXALIPLATIN [Suspect]
     Route: 042
     Dates: start: 20110511
  3. CAPECITABINE [Suspect]
     Indication: COLORECTAL CANCER
     Dosage: FREQUENCY: DAILY FOR 14 DAYS
     Route: 048
     Dates: start: 20100611, end: 20110410
  4. CAPTOPRIL [Concomitant]
     Dates: start: 20050101
  5. AMILORIDE HYDROCHLORIDE [Concomitant]
     Dates: start: 20040101
  6. SIMVASTATINA [Concomitant]
     Dates: start: 20100301
  7. HIDROSMIN [Concomitant]
     Dates: start: 20060101
  8. BEVACIZUMAB [Suspect]
     Route: 042
     Dates: start: 20110511
  9. OXALIPLATIN [Suspect]
     Indication: COLORECTAL CANCER
     Dosage: FORM: INFUSION. LAST DOSE PRIOR TO SAE: 08 APRIL 2011
     Route: 042
     Dates: start: 20100611, end: 20110410

REACTIONS (2)
  - HEPATITIS TOXIC [None]
  - DUODENITIS [None]
